FAERS Safety Report 5702372-4 (Version None)
Quarter: 2008Q2

REPORT INFORMATION
  Report Type: 
  Country: None (occurrence: None)
  Receive Date: 20080411
  Receipt Date: 20080404
  Transmission Date: 20081010
  Serious: Yes (Hospitalization, Disabling)
  Sender: FDA-Public Use
  Company Number: GB-BRISTOL-MYERS SQUIBB COMPANY-14140123

PATIENT
  Age: 34 Year
  Sex: Male

DRUGS (4)
  1. ETOPOSIDE [Suspect]
  2. DOXORUBICIN HCL [Suspect]
  3. IFOSFAMIDE [Suspect]
  4. VINCRISTINE SULFATE [Suspect]

REACTIONS (1)
  - CEREBRAL ISCHAEMIA [None]
